FAERS Safety Report 16863036 (Version 6)
Quarter: 2020Q2

REPORT INFORMATION
  Report Type: Report from Study
  Country: FR (occurrence: FR)
  Receive Date: 20190927
  Receipt Date: 20200421
  Transmission Date: 20200713
  Serious: Yes (Death, Hospitalization)
  Sender: FDA-Public Use
  Company Number: FR-JNJFOC-20190927586

PATIENT
  Age: 63 Year
  Sex: Male

DRUGS (2)
  1. INNOHEP [Concomitant]
     Active Substance: TINZAPARIN SODIUM
     Indication: PROPHYLAXIS
     Route: 058
  2. ABIRATERONE ACETATE. [Suspect]
     Active Substance: ABIRATERONE ACETATE
     Indication: HORMONE-REFRACTORY PROSTATE CANCER
     Route: 048
     Dates: start: 20190725, end: 20190906

REACTIONS (2)
  - Hepatocellular injury [Not Recovered/Not Resolved]
  - Spinal cord infection [Recovered/Resolved with Sequelae]

NARRATIVE: CASE EVENT DATE: 20190906
